FAERS Safety Report 7357054-2 (Version None)
Quarter: 2011Q1

REPORT INFORMATION
  Report Type: 
  Country: None (occurrence: None)
  Receive Date: 20110311
  Receipt Date: 20110311
  Transmission Date: 20110831
  Serious: Yes (Death, Hospitalization)
  Sender: FDA-Public Use
  Company Number: None

PATIENT
  Sex: Male
  Weight: 18.9 kg

DRUGS (8)
  1. G-CSF (FILGRASTIM, AMGEN) [Suspect]
     Dosage: 2700 MG
  2. CAMPTOSAR [Suspect]
     Dosage: 112 MG
  3. MESNA [Suspect]
     Dosage: 570 MG
  4. VINCRISTINE SULFATE [Suspect]
     Dosage: 3 MG
  5. CYCLOPHOSPHAMIDE [Suspect]
     Dosage: 2378 MG
  6. DOXORUBICIN HCL [Suspect]
     Dosage: 36.5 MG
  7. ETOPOSIDE [Suspect]
     Dosage: 320 MG
  8. CARBOPLATIN [Suspect]
     Dosage: 296 MG

REACTIONS (11)
  - ABDOMINAL DISTENSION [None]
  - ATELECTASIS [None]
  - THROMBOCYTOPENIA [None]
  - RESPIRATORY DISTRESS [None]
  - RENAL IMPAIRMENT [None]
  - HYPERBILIRUBINAEMIA [None]
  - COAGULOPATHY [None]
  - ANAEMIA [None]
  - INTERNATIONAL NORMALISED RATIO INCREASED [None]
  - PLEURAL EFFUSION [None]
  - HYPERKALAEMIA [None]
